FAERS Safety Report 14475377 (Version 1)
Quarter: 2018Q1

REPORT INFORMATION
  Report Type: Spontaneous
  Country: US (occurrence: US)
  Receive Date: 20180201
  Receipt Date: 20180201
  Transmission Date: 20180509
  Serious: No
  Sender: FDA-Public Use
  Company Number: US-PFIZER INC-2018038512

PATIENT
  Age: 74 Year
  Sex: Female
  Weight: 54 kg

DRUGS (1)
  1. ESTRING [Suspect]
     Active Substance: ESTRADIOL
     Indication: VAGINAL DISORDER
     Dosage: 2 MG, EVERY 3 MONTHS
     Route: 067
     Dates: start: 20180124

REACTIONS (4)
  - Product quality issue [Unknown]
  - Pancreatic cyst [Unknown]
  - Feeling abnormal [Unknown]
  - Vulvovaginal discomfort [Unknown]

NARRATIVE: CASE EVENT DATE: 20180124
